FAERS Safety Report 12994367 (Version 2)
Quarter: 2016Q4

REPORT INFORMATION
  Report Type: Spontaneous
  Country: ES (occurrence: ES)
  Receive Date: 20161202
  Receipt Date: 20161205
  Transmission Date: 20170207
  Serious: Yes (Other)
  Sender: FDA-Public Use
  Company Number: ES-009507513-1612ESP000083

PATIENT
  Age: 56 Year
  Sex: Female

DRUGS (3)
  1. IPILIMUMAB [Suspect]
     Active Substance: IPILIMUMAB
     Dosage: 3 MG/KG EVERY 3 WEEKS* 4 DOSES
     Dates: start: 201304
  2. INTRON A [Suspect]
     Active Substance: INTERFERON ALFA-2B
     Indication: ADJUVANT THERAPY
     Dosage: UNK
     Dates: start: 201203, end: 201209
  3. DACARBAZINE. [Suspect]
     Active Substance: DACARBAZINE
     Dosage: 1000MG/M2 EVERY 3 WEEKS
     Dates: start: 201211

REACTIONS (7)
  - Nausea [Unknown]
  - Metastases to skin [Unknown]
  - Lymphadenopathy [Unknown]
  - Hyperthyroidism [Recovered/Resolved]
  - Hypothyroidism [Unknown]
  - Metastases to breast [Unknown]
  - Lymphadenopathy [Unknown]

NARRATIVE: CASE EVENT DATE: 201203
